FAERS Safety Report 15766812 (Version 1)
Quarter: 2018Q4

REPORT INFORMATION
  Report Type: Spontaneous
  Country: HR (occurrence: HR)
  Receive Date: 20181227
  Receipt Date: 20181227
  Transmission Date: 20190205
  Serious: Yes (Hospitalization, Other)
  Sender: FDA-Public Use
  Company Number: HR-JNJFOC-20181228516

PATIENT
  Sex: Male

DRUGS (1)
  1. REMICADE [Suspect]
     Active Substance: INFLIXIMAB
     Indication: ANKYLOSING SPONDYLITIS
     Route: 042
     Dates: start: 201204

REACTIONS (4)
  - Ankylosing spondylitis [Unknown]
  - Hypersensitivity [Unknown]
  - Infusion related reaction [Unknown]
  - Iridocyclitis [Unknown]

NARRATIVE: CASE EVENT DATE: 2012
